FAERS Safety Report 5106477-0 (Version None)
Quarter: 2006Q3

REPORT INFORMATION
  Report Type: 
  Country: None (occurrence: None)
  Receive Date: 20060731
  Receipt Date: 20060203
  Transmission Date: 20061208
  Serious: Yes (Hospitalization)
  Sender: FDA-Public Use
  Company Number: US-JNJFOC-20060202046

PATIENT
  Age: 57 Year
  Sex: Female
  Weight: 89.8122 kg

DRUGS (12)
  1. RISPERDAL [Suspect]
     Indication: BIPOLAR DISORDER
     Dosage: 1 MG, 2 IN DAY, ORAL
     Route: 048
  2. DILANTIN [Concomitant]
  3. NEURONTIN [Concomitant]
  4. GLUCOPHAGE [Concomitant]
  5. [LAVIX (CLOPIDOGREL SULFATE) [Concomitant]
  6. ASPIRIN [Concomitant]
  7. ATENOLOL [Concomitant]
  8. CELEB (CELECOXIB) [Concomitant]
  9. DILTROPAN XL (OXYBUTYNIN HYDROCHLORIDE0 UNSPECIFIED [Concomitant]
  10. FLONASE [Concomitant]
  11. PRILOSEC [Concomitant]
  12. ZANTAC [Concomitant]

REACTIONS (1)
  - CEREBROVASCULAR ACCIDENT [None]
